FAERS Safety Report 8556569-9 (Version None)
Quarter: 2012Q3

REPORT INFORMATION
  Report Type: 
  Country: None (occurrence: None)
  Receive Date: 20120801
  Receipt Date: 20120724
  Transmission Date: 20120928
  Serious: Yes (Other)
  Sender: FDA-Public Use
  Company Number: US-BAYER-2012-071526

PATIENT
  Age: 28 Year
  Sex: Female

DRUGS (5)
  1. DROSPIRENONE AND ETHINYL ESTRADIOL [Suspect]
  2. LEVOTHYROXINE SODIUM [Concomitant]
     Dosage: 50 ?G, 1 DAILY
     Route: 048
     Dates: start: 20080903, end: 20111212
  3. SYNTHROID [Concomitant]
  4. YASMIN [Suspect]
  5. NORCO [Concomitant]

REACTIONS (1)
  - DEEP VEIN THROMBOSIS [None]
